FAERS Safety Report 16980762 (Version 1)
Quarter: 2019Q4

REPORT INFORMATION
  Report Type: Spontaneous
  Country: FR (occurrence: FR)
  Receive Date: 20191031
  Receipt Date: 20191031
  Transmission Date: 20200122
  Serious: Yes (Hospitalization)
  Sender: FDA-Public Use
  Company Number: FR-ALLERGAN-1943630US

PATIENT
  Sex: Female
  Weight: 84 kg

DRUGS (1)
  1. LEVONORGESTREL - BP [Suspect]
     Active Substance: LEVONORGESTREL
     Indication: CONTRACEPTION
     Route: 015
     Dates: end: 201803

REACTIONS (1)
  - Meningioma [Recovered/Resolved with Sequelae]

NARRATIVE: CASE EVENT DATE: 201712
